FAERS Safety Report 17188996 (Version 2)
Quarter: 2020Q1

REPORT INFORMATION
  Report Type: Report from Study
  Country: US (occurrence: US)
  Receive Date: 20191222
  Receipt Date: 20200115
  Transmission Date: 20200409
  Serious: Yes (Death, Hospitalization, Other)
  Sender: FDA-Public Use
  Company Number: US-AGIOS-1911US01514

PATIENT

DRUGS (2)
  1. TIBSOVO [Suspect]
     Active Substance: IVOSIDENIB
     Indication: ISOCITRATE DEHYDROGENASE GENE MUTATION
     Dosage: 500 MILLIGRAM, QD
     Route: 048
     Dates: start: 20191008
  2. TIBSOVO [Suspect]
     Active Substance: IVOSIDENIB
     Indication: CHOLANGIOCARCINOMA

REACTIONS (5)
  - Loss of personal independence in daily activities [Unknown]
  - Death [Fatal]
  - Pain [Recovered/Resolved]
  - Off label use [Unknown]
  - Product dose omission [Unknown]

NARRATIVE: CASE EVENT DATE: 20191008
